FAERS Safety Report 4913933-4 (Version None)
Quarter: 2006Q1

REPORT INFORMATION
  Report Type: 
  Country: None (occurrence: None)
  Receive Date: 20060216
  Receipt Date: 20050823
  Transmission Date: 20060701
  Serious: Yes (Hospitalization)
  Sender: FDA-Public Use
  Company Number: US-MERCK-0508USA03936

PATIENT
  Age: 65 Year
  Sex: Male
  Weight: 123 kg

DRUGS (17)
  1. VIOXX [Suspect]
     Indication: ARTHRALGIA
     Route: 048
     Dates: start: 20021202, end: 20041030
  2. CLOBETASOL PROPIONATE [Concomitant]
     Route: 065
  3. FELODIPINE [Concomitant]
     Route: 065
  4. METFORMIN HYDROCHLORIDE [Concomitant]
     Route: 065
  5. ASPIRIN [Concomitant]
     Route: 065
     Dates: start: 20021202
  6. METOPROLOL TARTRATE [Concomitant]
     Route: 065
  7. NITROGLYCERIN [Concomitant]
     Route: 065
  8. ZOCOR [Concomitant]
     Route: 065
  9. FUROSEMIDE [Concomitant]
     Route: 065
     Dates: start: 20040309, end: 20040910
  10. ACARBOSE [Concomitant]
     Route: 065
  11. CALCIPOTRIENE [Concomitant]
     Route: 065
  12. GABAPENTIN [Concomitant]
     Route: 065
     Dates: start: 20021202, end: 20030827
  13. GLYBURIDE [Concomitant]
     Route: 065
  14. IRBESARTAN [Concomitant]
     Route: 065
     Dates: start: 20020805, end: 20040910
  15. CLOPIDOGREL BISULFATE [Concomitant]
     Route: 065
  16. DOCUSATE SODIUM [Concomitant]
     Route: 065
  17. [THERAPY UNSPECIFIED] [Concomitant]
     Route: 065

REACTIONS (5)
  - ARTERIOSCLEROSIS CORONARY ARTERY [None]
  - BACK PAIN [None]
  - CORONARY ARTERY STENOSIS [None]
  - ISCHAEMIA [None]
  - LEFT VENTRICULAR END-DIASTOLIC PRESSURE INCREASED [None]
